FAERS Safety Report 7121599-0 (Version None)
Quarter: 2010Q4

REPORT INFORMATION
  Report Type: 
  Country: None (occurrence: None)
  Receive Date: 20101124
  Receipt Date: 20101116
  Transmission Date: 20110411
  Serious: Yes (Death, Hospitalization, Other)
  Sender: FDA-Public Use
  Company Number: US-ELI_LILLY_AND_COMPANY-US200901002474

PATIENT
  Sex: Female

DRUGS (1)
  1. FORTEO [Suspect]
     Indication: OSTEOPOROSIS
     Dosage: 20 UG, DAILY (1/D)

REACTIONS (6)
  - ABDOMINAL ABSCESS [None]
  - CLOSTRIDIUM DIFFICILE SEPSIS [None]
  - DIVERTICULITIS [None]
  - DYSPNOEA EXERTIONAL [None]
  - PERITONITIS BACTERIAL [None]
  - SURGERY [None]
